FAERS Safety Report 8244057 (Version 7)
Quarter: 2013Q2

REPORT INFORMATION
  Report Type: Spontaneous
  Country: US (occurrence: US)
  Receive Date: 20111114
  Receipt Date: 20130621
  Transmission Date: 20140414
  Serious: Yes (Other)
  Sender: FDA-Public Use
  Company Number: US-ASTRAZENECA-2006UW15010

PATIENT
  Age: 43 Year
  Sex: Male
  Weight: 106.1 kg

DRUGS (10)
  1. SYMBICORT PMDI [Suspect]
     Route: 055
  2. NEXIUM [Suspect]
     Indication: GASTROOESOPHAGEAL REFLUX DISEASE
     Route: 048
     Dates: start: 2006
  3. NEXIUM [Suspect]
     Indication: ABDOMINAL DISCOMFORT
     Route: 048
     Dates: start: 2006
  4. NEXIUM [Suspect]
     Indication: GASTROOESOPHAGEAL REFLUX DISEASE
     Route: 048
     Dates: start: 200904
  5. NEXIUM [Suspect]
     Indication: ABDOMINAL DISCOMFORT
     Route: 048
     Dates: start: 200904
  6. PRILOSEC [Suspect]
     Route: 048
  7. PRILOSEC [Suspect]
     Dosage: GENERIC
     Route: 065
  8. ATENOLOL [Suspect]
     Indication: HYPERTENSION
     Route: 048
     Dates: start: 2003
  9. LIPITOR [Concomitant]
     Indication: BLOOD CHOLESTEROL ABNORMAL
     Dates: start: 2003
  10. BENICAR [Concomitant]
     Indication: HYPERTENSION
     Dates: start: 2011

REACTIONS (24)
  - Post procedural haematoma [Unknown]
  - Extravasation [Unknown]
  - Joint dislocation [Unknown]
  - Weight increased [Unknown]
  - Neck pain [Unknown]
  - Sleep apnoea syndrome [Unknown]
  - Hypertension [Unknown]
  - Back pain [Unknown]
  - Muscle injury [Unknown]
  - Pain [Unknown]
  - Nasopharyngitis [Unknown]
  - Multiple allergies [Unknown]
  - Adverse event [Unknown]
  - Respiratory tract infection [Unknown]
  - Gait disturbance [Unknown]
  - Lung infection [Unknown]
  - Pharyngitis [Unknown]
  - Weight decreased [Unknown]
  - Fluid retention [Unknown]
  - Hyperchlorhydria [Unknown]
  - Drug dose omission [Unknown]
  - Off label use [Unknown]
  - Drug ineffective [Unknown]
  - Intentional drug misuse [Unknown]
